FAERS Safety Report 18890350 (Version 1)
Quarter: 2021Q1

REPORT INFORMATION
  Report Type: Report from Study
  Country: DE (occurrence: DE)
  Receive Date: 20210214
  Receipt Date: 20210214
  Transmission Date: 20210420
  Serious: Yes (Hospitalization)
  Sender: FDA-Public Use
  Company Number: DE-JNJFOC-20210217058

PATIENT
  Age: 5 Decade
  Sex: Female

DRUGS (15)
  1. MABTHERA [Concomitant]
     Active Substance: RITUXIMAB
     Dates: start: 201901
  2. CIMZIA [Concomitant]
     Active Substance: CERTOLIZUMAB PEGOL
     Dates: start: 201309, end: 201312
  3. METHOTREXATE. [Concomitant]
     Active Substance: METHOTREXATE
  4. ORENCIA [Concomitant]
     Active Substance: ABATACEPT
     Dates: start: 201401, end: 201606
  5. MABTHERA [Concomitant]
     Active Substance: RITUXIMAB
     Dates: start: 201612
  6. METHOTREXATE. [Concomitant]
     Active Substance: METHOTREXATE
  7. MABTHERA [Concomitant]
     Active Substance: RITUXIMAB
     Dates: start: 201607
  8. MABTHERA [Concomitant]
     Active Substance: RITUXIMAB
     Dates: start: 201706
  9. MABTHERA [Concomitant]
     Active Substance: RITUXIMAB
     Dates: start: 201801
  10. REMICADE [Suspect]
     Active Substance: INFLIXIMAB
     Indication: RHEUMATOID ARTHRITIS
     Route: 042
     Dates: start: 201202
  11. REMICADE [Suspect]
     Active Substance: INFLIXIMAB
     Route: 042
     Dates: end: 201308
  12. ROACTEMRA [Concomitant]
     Active Substance: TOCILIZUMAB
     Dates: start: 201008, end: 201201
  13. MABTHERA [Concomitant]
     Active Substance: RITUXIMAB
     Dates: start: 201908
  14. MABTHERA [Concomitant]
     Active Substance: RITUXIMAB
     Dates: start: 201807
  15. MABTHERA [Concomitant]
     Active Substance: RITUXIMAB
     Dates: start: 202002

REACTIONS (1)
  - Basal cell carcinoma [Recovered/Resolved]

NARRATIVE: CASE EVENT DATE: 202007
